FAERS Safety Report 7224825-2 (Version None)
Quarter: 2011Q1

REPORT INFORMATION
  Report Type: 
  Country: None (occurrence: None)
  Receive Date: 20110113
  Receipt Date: 20110107
  Transmission Date: 20110831
  Serious: Yes (Hospitalization)
  Sender: FDA-Public Use
  Company Number: HU-ROCHE-749652

PATIENT
  Sex: Female
  Weight: 84 kg

DRUGS (3)
  1. PLACEBO [Suspect]
     Indication: GLIOBLASTOMA
     Dosage: FORM:400MG/VIAL, LAST DOSE PRIOR TO SAE: 30 NOV 2010 TEMPORARILY INTERRUPTED.
     Route: 042
     Dates: start: 20100901, end: 20101214
  2. CIPROFLAXACIN [Concomitant]
     Dates: start: 20101130, end: 20101204
  3. TEMOZOLOMIDE [Suspect]
     Indication: GLIOBLASTOMA
     Dosage: FREQUENCY: FIXED 5 DAY PER CYCLE, LAST DOSE PRIOR TO SAE: 20 NOV 2010, TEMPORARILY INTERRUPTED.
     Route: 048
     Dates: start: 20101116, end: 20101214

REACTIONS (3)
  - HYPOALBUMINAEMIA [None]
  - FATIGUE [None]
  - PULMONARY EMBOLISM [None]
